FAERS Safety Report 7555089-8 (Version None)
Quarter: 2011Q2

REPORT INFORMATION
  Report Type: 
  Country: None (occurrence: None)
  Receive Date: 20110617
  Receipt Date: 20110610
  Transmission Date: 20111010
  Serious: Yes (Other)
  Sender: FDA-Public Use
  Company Number: US-PFIZER INC-2011073218

PATIENT
  Sex: Female
  Weight: 62.585 kg

DRUGS (1)
  1. CLEOCIN HYDROCHLORIDE [Suspect]
     Indication: VAGINAL INFECTION
     Dosage: 1 DAILY FOR 7 DAYS
     Route: 067
     Dates: start: 20110128, end: 20110130

REACTIONS (3)
  - URTICARIA [None]
  - HYPOTENSION [None]
  - DYSPNOEA [None]
